FAERS Safety Report 7683045 (Version 11)
Quarter: 2015Q4

REPORT INFORMATION
  Report Type: Report from Study
  Country: BE (occurrence: BE)
  Receive Date: 20101124
  Receipt Date: 20151218
  Transmission Date: 20160305
  Serious: Yes (Death)
  Sender: FDA-Public Use
  Company Number: BE-ROCHE-743958

PATIENT
  Age: 59 Year
  Sex: Female
  Weight: 85.4 kg

DRUGS (15)
  1. TUSSIPECT (BELGIUM) [Concomitant]
     Indication: NASOPHARYNGITIS
     Route: 048
     Dates: start: 20100203
  2. LASIX [Concomitant]
     Active Substance: FUROSEMIDE
     Indication: DYSPNOEA
     Dosage: 40 MG, 3/WEEK
     Route: 048
  3. ZOLPIDEM [Concomitant]
     Active Substance: ZOLPIDEM\ZOLPIDEM TARTRATE
     Indication: INSOMNIA
     Route: 048
  4. EMCONCOR [Concomitant]
     Active Substance: BISOPROLOL FUMARATE
     Indication: DYSPNOEA
     Route: 048
  5. MEDROL [Concomitant]
     Active Substance: METHYLPREDNISOLONE
     Indication: DYSPNOEA
     Route: 048
     Dates: start: 20100224
  6. PACLITAXEL. [Suspect]
     Active Substance: PACLITAXEL
     Indication: BREAST CANCER METASTATIC
     Dosage: 90 UNK, 3/MONTH, DATE OF LAST DOSE OF STUDY DRUG PACLITAXEL 03/FEB/2010
     Route: 042
     Dates: start: 20091125, end: 20100203
  7. DAFALGAN [Concomitant]
     Active Substance: ACETAMINOPHEN
     Indication: PAIN
     Route: 048
  8. INNOHEP [Concomitant]
     Active Substance: TINZAPARIN SODIUM
     Indication: PULMONARY EMBOLISM
     Dosage: 14000 IU, QD
     Route: 058
  9. DEXAMETHASONE. [Concomitant]
     Active Substance: DEXAMETHASONE
     Indication: HYPERSENSITIVITY
     Route: 048
     Dates: start: 20091124
  10. BEVACIZUMAB [Suspect]
     Active Substance: BEVACIZUMAB
     Indication: BREAST CANCER METASTATIC
     Dosage: 10 UNK, 2/MONTH, DATE OF LAST DOSE OF STUDY DRUG BEVACIZUMAB 03/FEB/2010
     Route: 042
     Dates: start: 20091223
  11. STOMATITIS COCKTAIL (HYDROCORTISONE, LIDOCAINE, NYSTATIN) [Concomitant]
     Indication: STOMATITIS
     Dosage: 1 TABLESPOON
     Route: 048
     Dates: start: 20100203
  12. TRITACE [Concomitant]
     Active Substance: RAMIPRIL
     Indication: DYSPNOEA
     Dosage: 2.5 MG, QD
     Route: 048
  13. ZYRTEC [Concomitant]
     Active Substance: CETIRIZINE HYDROCHLORIDE
     Indication: HYPERSENSITIVITY
     Route: 048
     Dates: start: 20091124
  14. PICTILISIB [Suspect]
     Active Substance: PICTILISIB
     Indication: BREAST CANCER METASTATIC
     Dosage: 60 UNK, QD, DATE OF LAST DOSE OF STUDY DRUG GDC-0941 :09/FEB/2010
     Route: 048
     Dates: start: 20091124, end: 20100209
  15. SERLAIN [Concomitant]
     Active Substance: SERTRALINE HYDROCHLORIDE
     Indication: PRODUCT USED FOR UNKNOWN INDICATION
     Dosage: 50 MG, QD
     Route: 065

REACTIONS (1)
  - Left ventricular dysfunction [Fatal]

NARRATIVE: CASE EVENT DATE: 20100518
